FAERS Safety Report 8405955-6 (Version None)
Quarter: 2012Q2

REPORT INFORMATION
  Report Type: 
  Country: None (occurrence: None)
  Receive Date: 20120323
  Receipt Date: 20110106
  Transmission Date: 20120825
  Serious: Yes (Other)
  Sender: FDA-Public Use
  Company Number: 163-21880-10051822

PATIENT
  Age: 81 Year
  Sex: Male

DRUGS (17)
  1. VERAPAMIL [Concomitant]
  2. ACIPHEX [Concomitant]
  3. DECADRON [Concomitant]
  4. ASPIRIN [Concomitant]
  5. REVLIMID [Suspect]
     Indication: PARAPROTEINAEMIA
     Dosage: SEE IMAGE
     Route: 048
     Dates: start: 20100301
  6. REVLIMID [Suspect]
     Indication: AMYLOIDOSIS
     Dosage: SEE IMAGE
     Route: 048
     Dates: start: 20100301
  7. REVLIMID [Suspect]
     Indication: PARAPROTEINAEMIA
     Dosage: SEE IMAGE
     Route: 048
     Dates: start: 20100510, end: 20100608
  8. REVLIMID [Suspect]
     Indication: AMYLOIDOSIS
     Dosage: SEE IMAGE
     Route: 048
     Dates: start: 20100510, end: 20100608
  9. REVLIMID [Suspect]
     Indication: PARAPROTEINAEMIA
     Dosage: SEE IMAGE
     Route: 048
     Dates: start: 20100201
  10. REVLIMID [Suspect]
     Indication: AMYLOIDOSIS
     Dosage: SEE IMAGE
     Route: 048
     Dates: start: 20100201
  11. SLOW FE (FERROUS SULFATE) [Concomitant]
  12. VELCADE [Concomitant]
  13. TORSEMIDE [Concomitant]
  14. VITAMIN D [Concomitant]
  15. COQ10 (UBIDECARENONE) [Concomitant]
  16. ACETAMINOPHEN [Concomitant]
  17. CRESTOR [Concomitant]

REACTIONS (3)
  - BLOOD CREATININE INCREASED [None]
  - RASH PRURITIC [None]
  - ANGIOEDEMA [None]
